FAERS Safety Report 15179147 (Version 1)
Quarter: 2018Q3

REPORT INFORMATION
  Report Type: Spontaneous
  Country: US (occurrence: US)
  Receive Date: 20180723
  Receipt Date: 20180723
  Transmission Date: 20181010
  Serious: Yes (Other)
  Sender: FDA-Public Use
  Company Number: US-CIPLA LTD.-2018US20010

PATIENT

DRUGS (7)
  1. DHE /00017802/ [Suspect]
     Active Substance: DIHYDROERGOTAMINE MESYLATE
     Indication: TRIGEMINAL NEURALGIA
     Dosage: UNK
     Route: 065
  2. GABAPENTIN. [Suspect]
     Active Substance: GABAPENTIN
     Indication: TRIGEMINAL NEURALGIA
     Dosage: UNK
     Route: 065
  3. MELATONIN [Suspect]
     Active Substance: MELATONIN
     Indication: TRIGEMINAL NEURALGIA
     Dosage: UNK
     Route: 065
  4. INDOMETHACIN                       /00003801/ [Suspect]
     Active Substance: INDOMETHACIN
     Indication: TRIGEMINAL NEURALGIA
     Dosage: UNK
     Route: 065
  5. GABAPENTIN. [Suspect]
     Active Substance: GABAPENTIN
     Dosage: UNK
     Route: 065
  6. CARBAMAZEPINE. [Suspect]
     Active Substance: CARBAMAZEPINE
     Indication: TRIGEMINAL NEURALGIA
     Dosage: UNK
     Route: 065
  7. BACLOFEN. [Suspect]
     Active Substance: BACLOFEN
     Indication: TRIGEMINAL NEURALGIA
     Dosage: UNK
     Route: 065

REACTIONS (8)
  - Lacrimation increased [None]
  - Therapeutic response shortened [None]
  - Drug effect decreased [None]
  - Vascular compression [None]
  - Eyelid ptosis [None]
  - Conjunctival hyperaemia [None]
  - Treatment failure [Unknown]
  - Nerve compression [None]
